FAERS Safety Report 19951991 (Version 2)
Quarter: 2022Q1

REPORT INFORMATION
  Report Type: Report from Study
  Country: CO (occurrence: CO)
  Receive Date: 20211014
  Receipt Date: 20220117
  Transmission Date: 20220424
  Serious: Yes (Hospitalization)
  Sender: FDA-Public Use
  Company Number: CO-BRISTOL-MYERS SQUIBB COMPANY-BMS-2021-079167

PATIENT
  Age: 43 Year
  Sex: Female
  Weight: 46 kg

DRUGS (1)
  1. ABATACEPT [Suspect]
     Active Substance: ABATACEPT
     Indication: Rheumatoid arthritis
     Dosage: 500 MILLIGRAM, Q4WK
     Route: 042
     Dates: start: 20210330

REACTIONS (7)
  - Nausea [Recovering/Resolving]
  - Headache [Recovering/Resolving]
  - Urinary incontinence [Recovering/Resolving]
  - Vomiting [Recovering/Resolving]
  - Dry skin [Recovering/Resolving]
  - Alopecia [Recovering/Resolving]
  - Vaginal pH abnormal [Recovering/Resolving]

NARRATIVE: CASE EVENT DATE: 20210727
